FAERS Safety Report 21185555 (Version 1)
Quarter: 2022Q3

REPORT INFORMATION
  Report Type: Spontaneous
  Country: US (occurrence: US)
  Receive Date: 20220808
  Receipt Date: 20220808
  Transmission Date: 20221027
  Serious: No
  Sender: FDA-Public Use
  Company Number: US-PFIZER INC-202201033481

PATIENT
  Age: 49 Year
  Sex: Male
  Weight: 99.79 kg

DRUGS (2)
  1. PAXLOVID [Suspect]
     Active Substance: NIRMATRELVIR\RITONAVIR
     Indication: COVID-19 treatment
     Dosage: 3 DF, 2X/DAY (300MG 100MG DOSE PACK. 3 TABLETS)
     Route: 048
     Dates: start: 20220801
  2. PREDNISONE [Concomitant]
     Active Substance: PREDNISONE
     Indication: Nasal congestion
     Dosage: 20 MG, 1X/DAY
     Dates: start: 20220801

REACTIONS (4)
  - Dysgeusia [Unknown]
  - Taste disorder [Unknown]
  - Product taste abnormal [Unknown]
  - Dry mouth [Unknown]

NARRATIVE: CASE EVENT DATE: 20220101
